FAERS Safety Report 5682632-6 (Version None)
Quarter: 2008Q1

REPORT INFORMATION
  Report Type: 
  Country: None (occurrence: None)
  Receive Date: 20080327
  Receipt Date: 20080115
  Transmission Date: 20080703
  Serious: No
  Sender: FDA-Public Use
  Company Number: US-BRISTOL-MYERS SQUIBB COMPANY-14041735

PATIENT
  Age: 36 Year
  Sex: Female
  Weight: 63 kg

DRUGS (3)
  1. ORENCIA [Suspect]
     Indication: RHEUMATOID ARTHRITIS
     Dosage: THEN, Q3W AND NOW Q4W. LAST INFUSION - 01JAN2008.
     Route: 042
     Dates: start: 20070501, end: 20080101
  2. CALCIUM [Concomitant]
  3. PREDNISONE TAB [Concomitant]

REACTIONS (5)
  - BACK PAIN [None]
  - FULL BLOOD COUNT DECREASED [None]
  - HEADACHE [None]
  - URINARY TRACT INFECTION [None]
  - VAGINAL HAEMORRHAGE [None]
